FAERS Safety Report 7148309-5 (Version None)
Quarter: 2010Q4

REPORT INFORMATION
  Report Type: 
  Country: None (occurrence: None)
  Receive Date: 20101209
  Receipt Date: 20101129
  Transmission Date: 20110411
  Serious: Yes (Hospitalization)
  Sender: FDA-Public Use
  Company Number: CA-ELI_LILLY_AND_COMPANY-CA201010003963

PATIENT
  Age: 90 Year
  Sex: Female

DRUGS (10)
  1. FORTEO [Suspect]
     Indication: OSTEOPOROSIS
     Dosage: 20 UG, DAILY (1/D)
     Route: 058
     Dates: start: 20091214
  2. FORTEO [Suspect]
     Dosage: 20 UG, DAILY (1/D)
     Route: 058
  3. COUMADIN [Concomitant]
  4. SYNTHROID [Concomitant]
  5. DIOVAN [Concomitant]
  6. ATENOLOL [Concomitant]
  7. LASIX [Concomitant]
  8. POTASSIUM CHLORIDE [Concomitant]
  9. K-DUR [Concomitant]
  10. VITAMIN D [Concomitant]

REACTIONS (3)
  - LOCALISED INFECTION [None]
  - MYELODYSPLASTIC SYNDROME [None]
  - WEIGHT DECREASED [None]
